FAERS Safety Report 25259559 (Version 1)
Quarter: 2025Q2

REPORT INFORMATION
  Report Type: Spontaneous
  Country: US (occurrence: None)
  Receive Date: 20250430
  Receipt Date: 20250430
  Transmission Date: 20250717
  Serious: Yes (Congenital Anomaly)
  Sender: FDA-CTU
  Company Number: None

PATIENT
  Age: 42 Year
  Sex: Female
  Weight: 112.5 kg

DRUGS (1)
  1. NADOLOL [Suspect]
     Active Substance: NADOLOL
     Dates: start: 20000815, end: 20250430

REACTIONS (1)
  - Gastrointestinal motility disorder [None]

NARRATIVE: CASE EVENT DATE: 20150430
